FAERS Safety Report 24350088 (Version 1)
Quarter: 2024Q3

REPORT INFORMATION
  Report Type: Report from Study
  Country: CA (occurrence: CA)
  Receive Date: 20240923
  Receipt Date: 20240923
  Transmission Date: 20241017
  Serious: Yes (Other)
  Sender: SAMSUNG BIOEPIS
  Company Number: CA-SAMSUNG BIOEPIS-SB-2024-22208

PATIENT
  Age: 20 Year
  Sex: Female
  Weight: 53 kg

DRUGS (8)
  1. RENFLEXIS [Suspect]
     Active Substance: INFLIXIMAB-ABDA
     Indication: Crohn^s disease
     Route: 042
     Dates: start: 20220216
  2. RENFLEXIS [Suspect]
     Active Substance: INFLIXIMAB-ABDA
     Route: 042
  3. PREDNISONE [Concomitant]
     Active Substance: PREDNISONE
     Indication: Product used for unknown indication
     Route: 065
  4. VITAMIN D [Concomitant]
     Active Substance: VITAMIN D NOS
     Indication: Product used for unknown indication
     Route: 065
  5. IRON [Concomitant]
     Active Substance: IRON
     Indication: Product used for unknown indication
     Route: 065
  6. alesia [Concomitant]
     Indication: Product used for unknown indication
     Route: 048
  7. ACETAMINOPHEN [Concomitant]
     Active Substance: ACETAMINOPHEN
     Indication: Premedication
     Route: 048
  8. CALCIUM [Concomitant]
     Active Substance: CALCIUM
     Indication: Product used for unknown indication
     Route: 065

REACTIONS (7)
  - Haematochezia [Not Recovered/Not Resolved]
  - Mouth ulceration [Recovering/Resolving]
  - Abdominal discomfort [Not Recovered/Not Resolved]
  - Frequent bowel movements [Not Recovered/Not Resolved]
  - Arthralgia [Not Recovered/Not Resolved]
  - Musculoskeletal stiffness [Not Recovered/Not Resolved]
  - Aphthous ulcer [Not Recovered/Not Resolved]

NARRATIVE: CASE EVENT DATE: 20240101
